FAERS Safety Report 9983177 (Version 1)
Quarter: 2014Q1

REPORT INFORMATION
  Report Type: Report from Study
  Country: US (occurrence: US)
  Receive Date: 20140307
  Receipt Date: 20140307
  Transmission Date: 20141002
  Serious: No
  Sender: FDA-Public Use
  Company Number: US-ABBVIE-13P-163-1177343-00

PATIENT
  Age: 54 Year
  Sex: Male

DRUGS (10)
  1. HUMIRA [Suspect]
     Indication: CROHN^S DISEASE
     Dates: start: 20130915
  2. PROGRAF [Concomitant]
     Indication: PROPHYLAXIS
  3. CLONIDINE [Concomitant]
     Indication: HYPERTENSION
  4. LISINOPRIL [Concomitant]
     Indication: HYPERTENSION
  5. PREDNISONE [Concomitant]
     Indication: CROHN^S DISEASE
  6. CELLCEPT [Concomitant]
     Indication: PROPHYLAXIS
  7. SODIUM BICARBONATE [Concomitant]
     Indication: RENAL TRANSPLANT
  8. PHOSLO [Concomitant]
     Indication: RENAL TRANSPLANT
  9. MAGNESIUM OXIDE [Concomitant]
     Indication: CROHN^S DISEASE
  10. PROCARDIA XL [Concomitant]
     Indication: PRODUCT USED FOR UNKNOWN INDICATION

REACTIONS (1)
  - Productive cough [Recovered/Resolved]
